FAERS Safety Report 21555387 (Version 1)
Quarter: 2022Q4

REPORT INFORMATION
  Report Type: Spontaneous
  Country: US (occurrence: None)
  Receive Date: 20221103
  Receipt Date: 20221103
  Transmission Date: 20230113
  Serious: Yes (Disabling)
  Sender: FDA-Public Use
  Company Number: None

PATIENT
  Age: 30 Year
  Sex: Female
  Weight: 112.5 kg

DRUGS (3)
  1. CETIRIZINE [Suspect]
     Active Substance: CETIRIZINE HYDROCHLORIDE
     Indication: Seasonal allergy
     Dosage: FREQUENCY : DAILY;?
     Route: 048
     Dates: start: 20170301, end: 20220514
  2. HYDROCORTISONE CREAM 1% [Concomitant]
     Active Substance: HYDROCORTISONE
  3. Loratadine - taking children^s for lower dosage, 2-5mg every 3-4 days [Concomitant]

REACTIONS (8)
  - Pruritus [None]
  - Urticaria [None]
  - Loss of personal independence in daily activities [None]
  - Pruritus [None]
  - Burning sensation [None]
  - Drug ineffective [None]
  - Lip pruritus [None]
  - Poor quality sleep [None]

NARRATIVE: CASE EVENT DATE: 20170301
